FAERS Safety Report 19024346 (Version 1)
Quarter: 2021Q1

REPORT INFORMATION
  Report Type: Other
  Country: US (occurrence: US)
  Receive Date: 20210317
  Receipt Date: 20210317
  Transmission Date: 20210420
  Serious: Yes (Other)
  Sender: FDA-Public Use
  Company Number: US-ROCHE-2734684

PATIENT
  Sex: Female
  Weight: 83.99 kg

DRUGS (6)
  1. XOLAIR [Suspect]
     Active Substance: OMALIZUMAB
     Dosage: ONGOING: YES
     Route: 058
     Dates: start: 201910
  2. XOLAIR [Suspect]
     Active Substance: OMALIZUMAB
     Indication: URTICARIA
     Dosage: ONGOING: NO
     Route: 058
     Dates: end: 2017
  3. EPINEPHRINE. [Concomitant]
     Active Substance: EPINEPHRINE
     Dosage: 1 AUTO INJECTOR AS NEEDED
     Route: 058
     Dates: start: 2005
  4. XOLAIR [Suspect]
     Active Substance: OMALIZUMAB
     Indication: ASTHMA
     Dosage: ONGOING: NO
     Route: 058
     Dates: start: 2005
  5. XOPENEX [Concomitant]
     Active Substance: LEVALBUTEROL HYDROCHLORIDE
     Dosage: 2 PUFFS AS NEED
     Route: 055
     Dates: start: 2005
  6. ZYRTEC (UNITED STATES) [Concomitant]
     Route: 048
     Dates: start: 2005

REACTIONS (7)
  - Cerebrovascular accident [Recovered/Resolved]
  - Hemiparesis [Not Recovered/Not Resolved]
  - Ear injury [Not Recovered/Not Resolved]
  - Migraine [Not Recovered/Not Resolved]
  - Memory impairment [Not Recovered/Not Resolved]
  - Asthenia [Not Recovered/Not Resolved]
  - Fatigue [Not Recovered/Not Resolved]

NARRATIVE: CASE EVENT DATE: 2009
